FAERS Safety Report 6604887-3 (Version None)
Quarter: 2010Q1

REPORT INFORMATION
  Report Type: 
  Country: None (occurrence: None)
  Receive Date: 20100226
  Receipt Date: 20100212
  Transmission Date: 20100710
  Serious: Yes (Hospitalization)
  Sender: FDA-Public Use
  Company Number: B0629708A

PATIENT
  Sex: Female

DRUGS (2)
  1. TYKERB [Suspect]
     Dosage: 1250MG PER DAY
     Route: 048
     Dates: start: 20090623
  2. XELODA [Suspect]
     Indication: CHEMOTHERAPY
     Dosage: 3000MG PER DAY
     Route: 048

REACTIONS (4)
  - DIARRHOEA [None]
  - ENTERITIS INFECTIOUS [None]
  - MUCOUS MEMBRANE DISORDER [None]
  - PYREXIA [None]
